FAERS Safety Report 22528252 (Version 1)
Quarter: 2023Q2

REPORT INFORMATION
  Report Type: Spontaneous
  Country: SG (occurrence: None)
  Receive Date: 20230607
  Receipt Date: 20230607
  Transmission Date: 20230722
  Serious: Yes (Death)
  Sender: FDA-Public Use
  Company Number: SG-ROCHE-3361867

PATIENT
  Sex: Male

DRUGS (1)
  1. AVASTIN [Suspect]
     Active Substance: BEVACIZUMAB
     Indication: Colorectal cancer
     Dosage: LAST TREATMENT WAS LIKELY IN AUG 2021
     Route: 065
     Dates: start: 20210831

REACTIONS (1)
  - Malignant neoplasm progression [Fatal]
